FAERS Safety Report 21417212 (Version 1)
Quarter: 2022Q4

REPORT INFORMATION
  Report Type: Spontaneous
  Country: CN (occurrence: CN)
  Receive Date: 20221006
  Receipt Date: 20221006
  Transmission Date: 20230113
  Serious: Yes (Other)
  Sender: FDA-Public Use
  Company Number: CN-PFIZER INC-PV202200074659

PATIENT
  Age: 54 Year
  Sex: Female
  Weight: 50 kg

DRUGS (2)
  1. TYGACIL [Suspect]
     Active Substance: TIGECYCLINE
     Indication: Anti-infective therapy
     Dosage: 50 MG, 2X/DAY
     Route: 041
     Dates: start: 20220806, end: 20220812
  2. MEROPENEM [Concomitant]
     Active Substance: MEROPENEM
     Indication: Anti-infective therapy
     Dosage: 1 G, 3X/DAY
     Route: 041
     Dates: start: 20220806, end: 20220906

REACTIONS (5)
  - Coagulopathy [Recovering/Resolving]
  - Fibrin degradation products increased [Recovering/Resolving]
  - Prothrombin time prolonged [Recovering/Resolving]
  - Blood fibrinogen decreased [Recovering/Resolving]
  - Thrombin time prolonged [Recovering/Resolving]

NARRATIVE: CASE EVENT DATE: 20220812
